FAERS Safety Report 10239224 (Version 2)
Quarter: 2014Q2

REPORT INFORMATION
  Report Type: Report from Study
  Country: GB (occurrence: GB)
  Receive Date: 20140616
  Receipt Date: 20140617
  Transmission Date: 20141212
  Serious: Yes (Hospitalization)
  Sender: FDA-Public Use
  Company Number: GB-US-EMD SERONO, INC.-7297778

PATIENT
  Age: 9 Year
  Sex: Female

DRUGS (1)
  1. SAIZEN [Suspect]
     Indication: GROWTH HORMONE DEFICIENCY
     Route: 058
     Dates: start: 20131203

REACTIONS (1)
  - Vomiting [Recovered/Resolved]
